FAERS Safety Report 16754351 (Version 2)
Quarter: 2019Q3

REPORT INFORMATION
  Report Type: Spontaneous
  Country: PL (occurrence: PL)
  Receive Date: 20190829
  Receipt Date: 20190904
  Transmission Date: 20191005
  Serious: Yes (Death, Other)
  Sender: FDA-Public Use
  Company Number: PL-MYLANLABS-2019M1078769

PATIENT
  Age: 14 Year
  Sex: Female

DRUGS (9)
  1. AMPHOTERICINUM B [Concomitant]
     Active Substance: AMPHOTERICIN B
     Dosage: UNK
  2. CASPOFUNGIN [Suspect]
     Active Substance: CASPOFUNGIN
     Indication: APLASTIC ANAEMIA
     Dosage: UNK
  3. CASPOFUNGIN [Suspect]
     Active Substance: CASPOFUNGIN
     Indication: FUNGAL INFECTION
  4. CASPOFUNGIN [Suspect]
     Active Substance: CASPOFUNGIN
     Indication: DYSPNOEA
  5. VORICONAZOLE. [Suspect]
     Active Substance: VORICONAZOLE
     Indication: APLASTIC ANAEMIA
     Dosage: UNK
  6. VASOPRESSINA [Concomitant]
     Dosage: UNK
  7. MYCAMINE [Concomitant]
     Active Substance: MICAFUNGIN SODIUM
     Dosage: UNK
  8. VORICONAZOLE. [Suspect]
     Active Substance: VORICONAZOLE
     Indication: FUNGAL INFECTION
  9. VORICONAZOLE. [Suspect]
     Active Substance: VORICONAZOLE
     Indication: DYSPNOEA

REACTIONS (3)
  - Drug ineffective [Unknown]
  - Circulatory collapse [Fatal]
  - Hypercapnia [Unknown]
